FAERS Safety Report 4551604-7 (Version None)
Quarter: 2005Q1

REPORT INFORMATION
  Report Type: 
  Country: None (occurrence: None)
  Receive Date: 20050111
  Receipt Date: 20041229
  Transmission Date: 20050727
  Serious: Yes (Hospitalization)
  Sender: FDA-Public Use
  Company Number: 2004AL001121

PATIENT
  Age: 63 Year
  Sex: Female

DRUGS (6)
  1. SERAX (OXAZEPAM) TABLETS, 15 MG (ALPHARMA) (SERAX (OXAZEPAM) TABLETS, [Suspect]
     Dosage: 50 MG;QD;PO
     Route: 048
     Dates: start: 20030120, end: 20030331
  2. MOPRAL ({NULL}) [Suspect]
     Dosage: 20 MG;QD;PO
     Route: 048
     Dates: start: 20030120, end: 20030331
  3. SOLU-MEDROL [Suspect]
     Dosage: 60 MG;QD;IV
     Route: 042
     Dates: start: 20030120, end: 20030331
  4. ZOLPIDEM TARTRATE [Suspect]
     Dosage: QD;PO
     Route: 048
     Dates: start: 20030120, end: 20030331
  5. TAXOTERE [Suspect]
     Dosage: 132 MG;QD;
     Dates: start: 20030120, end: 20030331
  6. ZOPHREN [Suspect]
     Dosage: QD;IV
     Dates: start: 20030120, end: 20030331

REACTIONS (1)
  - SUPRAVENTRICULAR TACHYCARDIA [None]
